FAERS Safety Report 15185476 (Version 2)
Quarter: 2019Q2

REPORT INFORMATION
  Report Type: Report from Study
  Country: US (occurrence: US)
  Receive Date: 20180723
  Receipt Date: 20190528
  Transmission Date: 20190711
  Serious: Yes (Hospitalization, Other)
  Sender: FDA-Public Use
  Company Number: US-SHIRE-US201827245

PATIENT
  Sex: Male

DRUGS (1)
  1. HUMAN NORMAL IMMUNOGLOBULIN; LIQUID 20 [Suspect]
     Active Substance: HUMAN IMMUNOGLOBULIN G
     Indication: IMMUNODEFICIENCY COMMON VARIABLE
     Dosage: UNK
     Route: 065
     Dates: end: 201811

REACTIONS (6)
  - Migraine [Unknown]
  - Pyrexia [Unknown]
  - Infusion related reaction [Unknown]
  - Product administration interrupted [Unknown]
  - Infection [Unknown]
  - Immunoglobulins decreased [Unknown]
